FAERS Safety Report 7640301-7 (Version None)
Quarter: 2011Q3

REPORT INFORMATION
  Report Type: 
  Country: None (occurrence: None)
  Receive Date: 20110728
  Receipt Date: 20090930
  Transmission Date: 20111222
  Serious: Yes (Other)
  Sender: FDA-Public Use
  Company Number: US-BAYER-200934803NA

PATIENT
  Age: 20 Year
  Sex: Male
  Weight: 61.224 kg

DRUGS (12)
  1. UNASYN [AMPICILLIN SODIUM,SULBACTAM SODIUM] [Concomitant]
     Dosage: UNK
  2. CEFOTAXIME [Concomitant]
     Route: 048
  3. GENTAMICIN [Concomitant]
     Dosage: UNK
     Route: 042
     Dates: start: 19980202
  4. ERYTHROMYCIN [Concomitant]
     Dosage: 4 MG, QID
     Route: 048
  5. MOTRIN [Concomitant]
     Dosage: 800 MG, TID
     Route: 048
  6. PROTAMINE SULFATE [Concomitant]
  7. RED BLOOD CELLS [Concomitant]
     Dosage: 4 U, UNK
     Route: 042
     Dates: start: 19980206
  8. CEFAZOLIN [Concomitant]
     Dosage: 2 G, UNK
     Route: 042
  9. TRASYLOL [Suspect]
     Indication: TRICUSPID VALVE REPLACEMENT
     Dosage: INITAL TEST DOSE, THEN 200 ML LOADING DOSE FOLLOWED BY 50ML/HR INFUSION
     Dates: start: 19980206, end: 19980206
  10. HEPARIN [Concomitant]
  11. PENICILLIN [Concomitant]
     Dosage: UNK
     Route: 042
     Dates: start: 19980202
  12. BENZONATATE [Concomitant]
     Dosage: 100 MG, QID
     Route: 048

REACTIONS (11)
  - RENAL INJURY [None]
  - NERVOUSNESS [None]
  - DEPRESSION [None]
  - PAIN [None]
  - FEAR [None]
  - ANHEDONIA [None]
  - EMOTIONAL DISTRESS [None]
  - ANXIETY [None]
  - MULTI-ORGAN FAILURE [None]
  - RENAL FAILURE [None]
  - INJURY [None]
